FAERS Safety Report 10678527 (Version 1)
Quarter: 2014Q4

REPORT INFORMATION
  Report Type: Spontaneous
  Country: GR (occurrence: GR)
  Receive Date: 20141229
  Receipt Date: 20141229
  Transmission Date: 20150529
  Serious: Yes (Other)
  Sender: FDA-Public Use
  Company Number: GR-EMD SERONO-8003020

PATIENT
  Sex: Female

DRUGS (1)
  1. REBIF [Suspect]
     Active Substance: INTERFERON BETA-1A
     Indication: MULTIPLE SCLEROSIS
     Dosage: 44 (UNSPECIFIED UNITS)
     Route: 058
     Dates: start: 201110, end: 201411

REACTIONS (4)
  - Ulcer [Recovering/Resolving]
  - Erythema [Recovering/Resolving]
  - Skin reaction [Recovering/Resolving]
  - Raynaud^s phenomenon [Recovering/Resolving]
